FAERS Safety Report 6046603-2 (Version None)
Quarter: 2009Q1

REPORT INFORMATION
  Report Type: 
  Country: None (occurrence: None)
  Receive Date: 20090122
  Receipt Date: 20090114
  Transmission Date: 20090719
  Serious: Yes (Other)
  Sender: FDA-Public Use
  Company Number: PHHY2009GB01723

PATIENT

DRUGS (8)
  1. TEGRETOL [Suspect]
     Indication: EPILEPSY
     Route: 048
  2. METOCLOPRAMIDE [Concomitant]
  3. FLIXONASE [Concomitant]
  4. BECONASE [Concomitant]
  5. IRON SUPPLEMENTS [Concomitant]
  6. BISACODYL [Concomitant]
  7. BACLOFEN [Concomitant]
  8. APRAMAZOLE [Concomitant]

REACTIONS (4)
  - BONE MARROW FAILURE [None]
  - CONSTIPATION [None]
  - HAEMORRHAGE [None]
  - VOMITING [None]
